FAERS Safety Report 5650689-4 (Version None)
Quarter: 2008Q1

REPORT INFORMATION
  Report Type: 
  Country: None (occurrence: None)
  Receive Date: 20080305
  Receipt Date: 20080222
  Transmission Date: 20080703
  Serious: Yes (Other)
  Sender: FDA-Public Use
  Company Number: US-AMGEN-QUU266618

PATIENT
  Sex: Female

DRUGS (2)
  1. ENBREL [Suspect]
     Indication: PSORIASIS
  2. ENBREL [Suspect]
     Indication: ARTHRITIS

REACTIONS (5)
  - ANXIETY [None]
  - ARTHRALGIA [None]
  - DEPRESSION [None]
  - MENORRHAGIA [None]
  - PSORIASIS [None]
